FAERS Safety Report 7088242-0 (Version None)
Quarter: 2010Q4

REPORT INFORMATION
  Report Type: 
  Country: None (occurrence: None)
  Receive Date: 20101108
  Receipt Date: 20100928
  Transmission Date: 20110411
  Serious: Yes (Hospitalization, Other)
  Sender: FDA-Public Use
  Company Number: US-BAXTER-2010BH001152

PATIENT
  Age: 43 Year
  Sex: Male
  Weight: 69 kg

DRUGS (34)
  1. HEPARIN SODIUM INJECTION [Suspect]
     Indication: HAEMODIALYSIS
     Route: 042
     Dates: start: 20070903, end: 20070928
  2. HEPARIN SODIUM INJECTION [Suspect]
     Indication: INTRAVENOUS CATHETER MANAGEMENT
     Route: 042
     Dates: start: 20070903, end: 20070928
  3. HEPARIN SODIUM INJECTION [Suspect]
     Indication: CHEST PAIN
     Route: 042
     Dates: start: 20070903, end: 20070928
  4. HEPARIN SODIUM INJECTION [Suspect]
     Route: 042
     Dates: start: 20070929, end: 20070929
  5. HEPARIN SODIUM INJECTION [Suspect]
     Route: 042
     Dates: start: 20070929, end: 20070929
  6. HEPARIN SODIUM INJECTION [Suspect]
     Route: 042
     Dates: start: 20070929, end: 20070929
  7. HEPARIN SODIUM INJECTION [Suspect]
     Route: 041
     Dates: start: 20071005, end: 20071007
  8. HEPARIN SODIUM INJECTION [Suspect]
     Route: 041
     Dates: start: 20071005, end: 20071007
  9. HEPARIN SODIUM INJECTION [Suspect]
     Route: 041
     Dates: start: 20071005, end: 20071007
  10. AMLODIPINE [Concomitant]
     Indication: PRODUCT USED FOR UNKNOWN INDICATION
     Route: 065
  11. ZEMURON [Concomitant]
     Indication: PRODUCT USED FOR UNKNOWN INDICATION
     Route: 065
  12. ATIVAN [Concomitant]
     Indication: PRODUCT USED FOR UNKNOWN INDICATION
     Route: 065
  13. TYLENOL [Concomitant]
     Indication: PRODUCT USED FOR UNKNOWN INDICATION
     Route: 065
  14. MINOXIDIL [Concomitant]
     Indication: PRODUCT USED FOR UNKNOWN INDICATION
     Route: 065
  15. OXYCODONE [Concomitant]
     Indication: PRODUCT USED FOR UNKNOWN INDICATION
     Route: 065
  16. PHENYTOIN [Concomitant]
     Indication: PRODUCT USED FOR UNKNOWN INDICATION
     Route: 065
  17. FOSPHENYTOIN [Concomitant]
     Indication: PRODUCT USED FOR UNKNOWN INDICATION
     Route: 065
  18. PHOSLO [Concomitant]
     Indication: PRODUCT USED FOR UNKNOWN INDICATION
     Route: 065
  19. ATENOLOL [Concomitant]
     Indication: PRODUCT USED FOR UNKNOWN INDICATION
     Route: 065
  20. MIDODRINE HYDROCHLORIDE [Concomitant]
     Indication: PRODUCT USED FOR UNKNOWN INDICATION
     Route: 065
  21. CORTICOSTEROID NOS [Concomitant]
     Indication: PRODUCT USED FOR UNKNOWN INDICATION
     Route: 065
  22. ANTIBIOTICS [Concomitant]
     Indication: PRODUCT USED FOR UNKNOWN INDICATION
     Route: 065
  23. ROCEPHIN [Concomitant]
     Indication: PRODUCT USED FOR UNKNOWN INDICATION
     Route: 065
  24. ROCEPHIN [Concomitant]
     Route: 065
  25. TESSALON [Concomitant]
     Indication: PRODUCT USED FOR UNKNOWN INDICATION
     Route: 048
  26. AZITHROMYCIN [Concomitant]
     Indication: PRODUCT USED FOR UNKNOWN INDICATION
     Route: 048
  27. LORCET-HD [Concomitant]
     Indication: PRODUCT USED FOR UNKNOWN INDICATION
     Route: 048
  28. LOTRISONE [Concomitant]
     Indication: PRODUCT USED FOR UNKNOWN INDICATION
     Route: 003
  29. AMOXICILLIN AND CLAVULANATE POTASSIUM [Concomitant]
     Indication: PRODUCT USED FOR UNKNOWN INDICATION
     Route: 065
  30. NORCO [Concomitant]
     Indication: PRODUCT USED FOR UNKNOWN INDICATION
     Route: 048
  31. GARAMYCIN [Concomitant]
     Indication: PRODUCT USED FOR UNKNOWN INDICATION
     Route: 047
  32. GARAMYCIN [Concomitant]
     Route: 047
  33. PROMETHAZINE W/ CODEINE [Concomitant]
     Indication: PRODUCT USED FOR UNKNOWN INDICATION
     Route: 048
  34. DEXAMETHASONE [Concomitant]
     Indication: PRODUCT USED FOR UNKNOWN INDICATION
     Route: 065

REACTIONS (24)
  - ABDOMINAL PAIN [None]
  - ARTHRALGIA [None]
  - BACK PAIN [None]
  - BLOOD PRESSURE DECREASED [None]
  - BRONCHITIS [None]
  - CARDIAC DISORDER [None]
  - CHEST DISCOMFORT [None]
  - CONVULSION [None]
  - DIZZINESS [None]
  - DYSPHAGIA [None]
  - HAEMORRHAGE SUBCUTANEOUS [None]
  - LIP SWELLING [None]
  - MUSCULOSKELETAL PAIN [None]
  - NECK PAIN [None]
  - OEDEMA MOUTH [None]
  - OSTEOARTHRITIS [None]
  - OTITIS MEDIA [None]
  - PHARYNGEAL OEDEMA [None]
  - RASH [None]
  - RHINITIS ALLERGIC [None]
  - SKIN BURNING SENSATION [None]
  - SKIN LACERATION [None]
  - SWOLLEN TONGUE [None]
  - SYNCOPE [None]
